FAERS Safety Report 19274085 (Version 1)
Quarter: 2021Q2

REPORT INFORMATION
  Report Type: Spontaneous
  Country: US (occurrence: US)
  Receive Date: 20210519
  Receipt Date: 20210519
  Transmission Date: 20210717
  Serious: Yes (Hospitalization)
  Sender: FDA-Public Use
  Company Number: None

PATIENT
  Sex: Female

DRUGS (2)
  1. IMBRUVICA [Concomitant]
     Active Substance: IBRUTINIB
     Dates: start: 20210504
  2. PROMACTA [Suspect]
     Active Substance: ELTROMBOPAG OLAMINE
     Dates: start: 20210421

REACTIONS (4)
  - Haematemesis [None]
  - Oral pain [None]
  - Nausea [None]
  - Headache [None]
